FAERS Safety Report 15818902 (Version 1)
Quarter: 2019Q1

REPORT INFORMATION
  Report Type: Spontaneous
  Country: US (occurrence: US)
  Receive Date: 20190114
  Receipt Date: 20190114
  Transmission Date: 20190417
  Serious: No
  Sender: FDA-Public Use
  Company Number: US-LUPIN PHARMACEUTICALS INC.-2017-07385

PATIENT
  Age: 82 Year
  Sex: Female

DRUGS (1)
  1. CEFDINIR CAPSULES USP, 300 MG [Suspect]
     Active Substance: CEFDINIR
     Indication: CYSTITIS
     Dosage: 1 DF, BID
     Route: 048

REACTIONS (1)
  - Diarrhoea [Unknown]
